FAERS Safety Report 8287764-4 (Version None)
Quarter: 2012Q2

REPORT INFORMATION
  Report Type: 
  Country: None (occurrence: None)
  Receive Date: 20120416
  Receipt Date: 20120410
  Transmission Date: 20120825
  Serious: Yes (Disabling, Other)
  Sender: FDA-Public Use
  Company Number: US-MERCK-0504USA00652

PATIENT
  Age: 56 Year
  Sex: Male

DRUGS (14)
  1. AMITRIPTYLINE HYDROCHLORIDE [Concomitant]
     Route: 065
  2. TERAZOSIN HYDROCHLORIDE [Concomitant]
     Route: 065
  3. DIPHENHYDRAMINE HYDROCHLORIDE [Concomitant]
     Route: 065
  4. HYDROXYZINE HYDROCHLORIDE [Concomitant]
     Route: 065
  5. ASPIRIN [Concomitant]
     Route: 065
  6. FOSAMAX [Suspect]
     Route: 048
     Dates: start: 20040101
  7. TRAZODONE HYDROCHLORIDE [Concomitant]
     Route: 065
  8. DURAGESIC-100 [Concomitant]
     Indication: PAIN
     Route: 065
  9. VITAMINS (UNSPECIFIED) [Concomitant]
     Route: 065
  10. DILANTIN [Concomitant]
     Route: 065
  11. LORATADINE [Concomitant]
     Route: 065
  12. FOSAMAX [Suspect]
     Indication: OSTEOPOROSIS
     Route: 048
     Dates: start: 19940101, end: 20040101
  13. FOSAMAX [Suspect]
     Route: 048
     Dates: start: 19950101, end: 20100101
  14. CALCIUM CARBONATE [Concomitant]
     Route: 065

REACTIONS (4)
  - FEMUR FRACTURE [None]
  - RIB FRACTURE [None]
  - FALL [None]
  - THERAPEUTIC RESPONSE DECREASED [None]
